FAERS Safety Report 10211553 (Version 1)
Quarter: 2014Q2

REPORT INFORMATION
  Report Type: Spontaneous
  Country: US (occurrence: US)
  Receive Date: 20140602
  Receipt Date: 20140602
  Transmission Date: 20141212
  Serious: Yes (Hospitalization)
  Sender: FDA-Public Use
  Company Number: US-UPSHER-SMITH LABORATORIES, INC.-14001264

PATIENT
  Sex: Female

DRUGS (10)
  1. FORTICAL [Suspect]
     Indication: OSTEOPOROSIS
     Dosage: 200 IU, QD
     Route: 045
     Dates: start: 2009
  2. AMOXICILLIN [Concomitant]
     Indication: SINUSITIS
     Dosage: UNK
  3. PATANOL [Concomitant]
     Indication: HYPERSENSITIVITY
     Dosage: UNK
  4. PRAVASTATIN [Concomitant]
     Indication: BLOOD CHOLESTEROL INCREASED
     Dosage: UNK
  5. SODIUM CHLORIDE [Concomitant]
     Indication: SINUSITIS
     Dosage: UNK
  6. PROCTOFOAM [Concomitant]
     Indication: ANAL FISSURE
     Dosage: UNK
  7. NEXIUM [Concomitant]
     Indication: GASTROOESOPHAGEAL REFLUX DISEASE
     Dosage: UNK
  8. AMIODARONE HCL [Concomitant]
     Indication: ATRIAL FIBRILLATION
     Dosage: UNK
  9. MICARDIS [Concomitant]
     Indication: CARDIAC DISORDER
     Dosage: UNK
  10. CLARITIN [Concomitant]
     Indication: HYPERSENSITIVITY
     Dosage: UNK

REACTIONS (2)
  - Femur fracture [Recovered/Resolved]
  - Drug ineffective [Not Recovered/Not Resolved]
